FAERS Safety Report 10582791 (Version 2)
Quarter: 2014Q4

REPORT INFORMATION
  Report Type: Spontaneous
  Country: ES (occurrence: ES)
  Receive Date: 20141113
  Receipt Date: 20141113
  Transmission Date: 20150529
  Serious: Yes (Life-Threatening, Hospitalization)
  Sender: FDA-Public Use
  Company Number: ES-ROCHE-1486872

PATIENT
  Age: 26 Year
  Sex: Female
  Weight: 67 kg

DRUGS (1)
  1. AVASTIN [Suspect]
     Active Substance: BEVACIZUMAB
     Indication: CERVIX CARCINOMA
     Dosage: DATE OF LAST DOSE PRIOR TO SAE 14/OCT/2014
     Route: 042
     Dates: start: 20140328

REACTIONS (4)
  - Malignant hypertension [Recovering/Resolving]
  - Microangiopathy [Recovering/Resolving]
  - Posterior reversible encephalopathy syndrome [Recovering/Resolving]
  - Renal failure [Unknown]

NARRATIVE: CASE EVENT DATE: 20141104
